FAERS Safety Report 12271757 (Version 1)
Quarter: 2016Q2

REPORT INFORMATION
  Report Type: Spontaneous
  Country: GB (occurrence: GB)
  Receive Date: 20160415
  Receipt Date: 20160415
  Transmission Date: 20160815
  Serious: Yes (Hospitalization)
  Sender: FDA-Public Use
  Company Number: GB-TEVA-650815ACC

PATIENT
  Age: 56 Year
  Sex: Male
  Weight: 105.22 kg

DRUGS (12)
  1. ATORVASTATIN [Concomitant]
     Active Substance: ATORVASTATIN
  2. PREGABALIN. [Concomitant]
     Active Substance: PREGABALIN
  3. IRBESARTAN. [Concomitant]
     Active Substance: IRBESARTAN
  4. MIRTAZAPINE. [Concomitant]
     Active Substance: MIRTAZAPINE
  5. SPIRIVA [Concomitant]
     Active Substance: TIOTROPIUM BROMIDE MONOHYDRATE
  6. PARACETAMOL [Concomitant]
     Active Substance: ACETAMINOPHEN
  7. PREDNISOLONE. [Suspect]
     Active Substance: PREDNISOLONE
     Indication: OCCUPATIONAL ASTHMA
     Dosage: 30 MILLIGRAM DAILY;
     Route: 048
     Dates: start: 20150701, end: 20160209
  8. ASPIRIN. [Concomitant]
     Active Substance: ASPIRIN
  9. LANSOPRAZOLE. [Concomitant]
     Active Substance: LANSOPRAZOLE
  10. SYMBICORT [Concomitant]
     Active Substance: BUDESONIDE\FORMOTEROL FUMARATE DIHYDRATE
  11. ALENDRONIC ACID [Concomitant]
     Active Substance: ALENDRONIC ACID
  12. DOXYCYCLINE. [Concomitant]
     Active Substance: DOXYCYCLINE

REACTIONS (4)
  - Tendon pain [Unknown]
  - Abnormal weight gain [Recovering/Resolving]
  - Tendon rupture [Unknown]
  - Dermatitis acneiform [Recovering/Resolving]

NARRATIVE: CASE EVENT DATE: 20150701
